FAERS Safety Report 4297867-7 (Version None)
Quarter: 2004Q1

REPORT INFORMATION
  Report Type: 
  Country: None (occurrence: None)
  Receive Date: 20040217
  Receipt Date: 20040217
  Transmission Date: 20041129
  Serious: No
  Sender: FDA-Public Use
  Company Number: None

PATIENT
  Age: 62 Year
  Sex: Male
  Weight: 125.1928 kg

DRUGS (1)
  1. PROPOFOL [Suspect]
     Indication: INTUBATION
     Dosage: 1 ML X 1
     Dates: start: 20031229

REACTIONS (2)
  - ABNORMAL BEHAVIOUR [None]
  - AGGRESSION [None]
